FAERS Safety Report 4811727-1 (Version None)
Quarter: 2005Q4

REPORT INFORMATION
  Report Type: 
  Country: None (occurrence: None)
  Receive Date: 20051025
  Receipt Date: 20051018
  Transmission Date: 20060501
  Serious: Yes (Death)
  Sender: FDA-Public Use
  Company Number: 213275

PATIENT
  Age: 61 Year
  Sex: Male
  Weight: 87 kg

DRUGS (5)
  1. MABTHERA (RITUXIMAB) CONC FOR SOLUTION FOR INFUSION [Suspect]
     Indication: NON-HODGKIN'S LYMPHOMA
     Dosage: SINGLE, INTRAVENOUS
     Dates: start: 20041110, end: 20041110
  2. ZEVALIN [Suspect]
     Indication: NON-HODGKIN'S LYMPHOMA
     Dosage: 1182 MBQ, SINGLE, INTRAVENOUS
     Route: 042
     Dates: start: 20041110, end: 20041110
  3. YTTRIUM-90 (YTTRIUM-90) [Suspect]
     Indication: NON-HODGKIN'S LYMPHOMA
     Dosage: 1182 MBQ, SINGLE, INTRAVENOUS
     Route: 042
     Dates: start: 20041110, end: 20041110
  4. DEXAMETHASONE [Concomitant]
  5. OXYCODONE HCL [Concomitant]

REACTIONS (4)
  - ABDOMINAL PAIN UPPER [None]
  - CARDIO-RESPIRATORY ARREST [None]
  - CHEST PAIN [None]
  - FALL [None]
